FAERS Safety Report 14066651 (Version 3)
Quarter: 2018Q1

REPORT INFORMATION
  Report Type: Report from Study
  Country: CA (occurrence: CA)
  Receive Date: 20171010
  Receipt Date: 20180228
  Transmission Date: 20180508
  Serious: Yes (Hospitalization, Other)
  Sender: FDA-Public Use
  Company Number: CA-BRISTOL-MYERS SQUIBB COMPANY-BMS-2017-066311

PATIENT
  Age: 68 Year
  Sex: Female

DRUGS (1)
  1. ABATACEPT [Suspect]
     Active Substance: ABATACEPT
     Indication: RHEUMATOID ARTHRITIS
     Dosage: 125 MG, QWK
     Route: 058
     Dates: start: 20170422

REACTIONS (19)
  - Myocardial infarction [Recovering/Resolving]
  - Musculoskeletal stiffness [Unknown]
  - Dyspepsia [Recovering/Resolving]
  - Hypotension [Unknown]
  - Large intestinal obstruction [Recovering/Resolving]
  - Hypertension [Recovering/Resolving]
  - Nodule [Unknown]
  - Pain [Unknown]
  - Vulvovaginal mycotic infection [Unknown]
  - Back pain [Not Recovered/Not Resolved]
  - Dizziness [Unknown]
  - Urinary tract infection [Recovering/Resolving]
  - Flatulence [Recovering/Resolving]
  - Aneurysm [Unknown]
  - Myalgia [Unknown]
  - Skin disorder [Unknown]
  - Eructation [Recovering/Resolving]
  - Diarrhoea [Recovering/Resolving]
  - Abdominal distension [Unknown]

NARRATIVE: CASE EVENT DATE: 20170815
